FAERS Safety Report 8403110-7 (Version None)
Quarter: 2012Q2

REPORT INFORMATION
  Report Type: 
  Country: None (occurrence: None)
  Receive Date: 20120601
  Receipt Date: 20120523
  Transmission Date: 20120825
  Serious: Yes (Death, Hospitalization)
  Sender: FDA-Public Use
  Company Number: KR-JNJFOC-20120518067

PATIENT
  Age: 81 Year
  Sex: Male
  Weight: 62.8 kg

DRUGS (3)
  1. ABIRATERONE ACETATE [Suspect]
     Indication: PROSTATE CANCER METASTATIC
     Route: 048
     Dates: start: 20120313, end: 20120516
  2. ABIRATERONE ACETATE [Suspect]
     Route: 048
  3. PREDNISOLONE [Suspect]
     Indication: PROSTATE CANCER METASTATIC
     Route: 048
     Dates: start: 20120513, end: 20120516

REACTIONS (3)
  - PLEURAL EFFUSION [None]
  - DISEASE PROGRESSION [None]
  - OEDEMA PERIPHERAL [None]
